FAERS Safety Report 8267443-X (Version None)
Quarter: 2012Q2

REPORT INFORMATION
  Report Type: 
  Country: None (occurrence: None)
  Receive Date: 20120409
  Receipt Date: 20120404
  Transmission Date: 20120825
  Serious: Yes (Death, Other)
  Sender: FDA-Public Use
  Company Number: PHHY2012CH029156

PATIENT
  Age: 24 Year
  Sex: Female
  Weight: 119 kg

DRUGS (8)
  1. CLOZAPINE [Suspect]
     Dosage: 600 MG, UNK
     Dates: start: 20110201, end: 20110301
  2. ESOMEPRAZOLE [Concomitant]
     Dosage: 40 MG, UNK
     Route: 048
     Dates: start: 20110701
  3. OXAZEPAM [Concomitant]
     Dosage: 120 MG, UNK
  4. CLOZAPINE [Suspect]
     Indication: SCHIZOPHRENIA, PARANOID TYPE
     Dosage: UNK UKN, UNK
     Dates: start: 20110201
  5. OXAZEPAM [Concomitant]
     Dosage: 120 MG, UNK
  6. CLOZAPINE [Suspect]
     Dosage: 800 MG, UNK
     Dates: end: 20110601
  7. CITALOPRAM HYDROBROMIDE [Concomitant]
     Dosage: 20 MG, DAILY
     Route: 048
  8. ZOPICLONE [Concomitant]
     Dosage: 7.5 MG, UNK
     Route: 048

REACTIONS (3)
  - SUDDEN DEATH [None]
  - ANTIPSYCHOTIC DRUG LEVEL ABOVE THERAPEUTIC [None]
  - TOXICITY TO VARIOUS AGENTS [None]
